FAERS Safety Report 9760210 (Version 1)
Quarter: 2013Q4

REPORT INFORMATION
  Report Type: Spontaneous
  Country: US (occurrence: US)
  Receive Date: 20131216
  Receipt Date: 20131216
  Transmission Date: 20140711
  Serious: No
  Sender: FDA-Public Use
  Company Number: US-PFIZER INC-2013359016

PATIENT
  Age: 55 Year
  Sex: Female
  Weight: 63.49 kg

DRUGS (1)
  1. CHANTIX [Suspect]
     Indication: SMOKING CESSATION THERAPY
     Dosage: UNK, 2X/DAY
     Dates: start: 2012

REACTIONS (2)
  - Stress [Unknown]
  - General physical health deterioration [Unknown]
